FAERS Safety Report 11286881 (Version 3)
Quarter: 2015Q4

REPORT INFORMATION
  Report Type: Spontaneous
  Country: US (occurrence: US)
  Receive Date: 20150721
  Receipt Date: 20151029
  Transmission Date: 20160304
  Serious: No
  Sender: FDA-Public Use
  Company Number: US-BIOGENIDEC-2015BI098201

PATIENT
  Age: 31 Year
  Sex: Female

DRUGS (10)
  1. AVONEX [Suspect]
     Active Substance: INTERFERON BETA-1A
     Indication: MULTIPLE SCLEROSIS
     Route: 030
     Dates: start: 20130311, end: 20150601
  2. DIFLUCAN [Concomitant]
     Active Substance: FLUCONAZOLE
     Route: 048
  3. JUNEL [Concomitant]
     Active Substance: ETHINYL ESTRADIOL\NORETHINDRONE ACETATE
     Route: 048
  4. MUPIROCIN. [Concomitant]
     Active Substance: MUPIROCIN
  5. VICODIN [Concomitant]
     Active Substance: ACETAMINOPHEN\HYDROCODONE BITARTRATE
     Route: 048
  6. CLARITIN [Concomitant]
     Active Substance: LORATADINE
     Route: 048
  7. AVONEX [Suspect]
     Active Substance: INTERFERON BETA-1A
     Indication: MULTIPLE SCLEROSIS
     Route: 030
  8. AVONEX [Suspect]
     Active Substance: INTERFERON BETA-1A
     Indication: MULTIPLE SCLEROSIS
     Route: 030
     Dates: start: 201303, end: 201404
  9. METROGEL [Concomitant]
     Active Substance: METRONIDAZOLE
  10. WELLBUTRIN [Concomitant]
     Active Substance: BUPROPION HYDROCHLORIDE
     Route: 048

REACTIONS (13)
  - Anger [Unknown]
  - Chills [Unknown]
  - Headache [Unknown]
  - Mood swings [Unknown]
  - Glomus jugulare tumour [Unknown]
  - Upper respiratory tract infection [Unknown]
  - Influenza like illness [Unknown]
  - Muscular weakness [Recovered/Resolved]
  - Multiple sclerosis relapse [Unknown]
  - Pyrexia [Unknown]
  - Fatigue [Unknown]
  - Paraesthesia [Recovered/Resolved]
  - Hypoaesthesia [Recovered/Resolved]

NARRATIVE: CASE EVENT DATE: 2007
